FAERS Safety Report 16093976 (Version 1)
Quarter: 2019Q1

REPORT INFORMATION
  Report Type: Spontaneous
  Country: US (occurrence: US)
  Receive Date: 20190320
  Receipt Date: 20190320
  Transmission Date: 20190418
  Serious: Yes (Other)
  Sender: FDA-Public Use
  Company Number: US-009507513-1903USA006588

PATIENT
  Sex: Male

DRUGS (2)
  1. KEYTRUDA [Suspect]
     Active Substance: PEMBROLIZUMAB
     Indication: MALIGNANT MELANOMA STAGE III
     Dosage: 2 MILLIGRAM/KILOGRAM, Q3W
     Route: 042
     Dates: start: 201612, end: 201812
  2. YERVOY [Concomitant]
     Active Substance: IPILIMUMAB

REACTIONS (5)
  - Anxiety [Not Recovered/Not Resolved]
  - Thyroid gland injury [Not Recovered/Not Resolved]
  - Pruritus [Not Recovered/Not Resolved]
  - Vitiligo [Not Recovered/Not Resolved]
  - Fatigue [Not Recovered/Not Resolved]
